FAERS Safety Report 8997312 (Version 2)
Quarter: 2013Q1

REPORT INFORMATION
  Report Type: Spontaneous
  Country: TR (occurrence: TR)
  Receive Date: 20130104
  Receipt Date: 20130319
  Transmission Date: 20140127
  Serious: Yes (Hospitalization, Other)
  Sender: FDA-Public Use
  Company Number: TR-ASTELLAS-2012EU011433

PATIENT
  Age: 11 Year
  Sex: Male
  Weight: 25 kg

DRUGS (10)
  1. PROGRAF [Suspect]
     Indication: RENAL TRANSPLANT
     Dosage: 3 MG, UNKNOWN/D
     Route: 048
  2. DELTA-CORTRIL [Concomitant]
     Dosage: 5 MG, OTHER
     Route: 065
  3. MYFORTIC [Interacting]
     Dosage: 320 MG, UNKNOWN/D
     Route: 065
  4. IMURAN                             /00001501/ [Concomitant]
     Dosage: UNK
     Route: 065
  5. ENAPRIL [Concomitant]
     Dosage: UNK
     Route: 065
  6. VASOCARD [Concomitant]
     Dosage: UNK
     Route: 065
  7. DIDERAL [Concomitant]
     Dosage: UNK
     Route: 065
  8. MINOXIDIL [Concomitant]
     Dosage: UNK
     Route: 065
  9. CYSTEAMIN [Concomitant]
     Indication: CYSTINOSIS
     Dosage: UNK
     Route: 065
  10. LEVOTIRON [Concomitant]
     Dosage: UNK
     Route: 065

REACTIONS (8)
  - Drug interaction [Unknown]
  - Toxicity to various agents [Recovered/Resolved]
  - Pleurisy [Unknown]
  - Pleural effusion [Recovering/Resolving]
  - Oliguria [Unknown]
  - Blood creatinine increased [Recovering/Resolving]
  - Emotional disorder [Unknown]
  - Suicidal ideation [Unknown]
